FAERS Safety Report 18992934 (Version 1)
Quarter: 2021Q1

REPORT INFORMATION
  Report Type: Spontaneous
  Country: ES (occurrence: ES)
  Receive Date: 20210310
  Receipt Date: 20210310
  Transmission Date: 20210420
  Serious: Yes (Hospitalization, Other)
  Sender: FDA-Public Use
  Company Number: ES-SA-2021SA073781

PATIENT
  Age: 37 Year
  Sex: Male
  Weight: 90 kg

DRUGS (1)
  1. APIDRA [Suspect]
     Active Substance: INSULIN GLULISINE
     Indication: TYPE 2 DIABETES MELLITUS
     Dosage: 6 IU, TID
     Route: 058
     Dates: start: 2018

REACTIONS (6)
  - Therapeutic response decreased [Unknown]
  - Hypoglycaemia [Unknown]
  - Neurological symptom [Unknown]
  - Hyperglycaemia [Unknown]
  - Urinary tract infection [Recovered/Resolved]
  - Diabetes mellitus inadequate control [Unknown]
